FAERS Safety Report 11872477 (Version 2)
Quarter: 2016Q2

REPORT INFORMATION
  Report Type: Spontaneous
  Country: US (occurrence: US)
  Receive Date: 20151228
  Receipt Date: 20160421
  Transmission Date: 20160815
  Serious: No
  Sender: FDA-Public Use
  Company Number: US-009507513-1512USA012586

PATIENT
  Age: 28 Year
  Sex: Female

DRUGS (1)
  1. NEXPLANON [Suspect]
     Active Substance: ETONOGESTREL
     Dosage: UNK
     Route: 059
     Dates: start: 20130402

REACTIONS (5)
  - Device difficult to use [Not Recovered/Not Resolved]
  - Complication of device insertion [Recovered/Resolved]
  - Product quality issue [Unknown]
  - No adverse event [Unknown]
  - Device breakage [Not Recovered/Not Resolved]

NARRATIVE: CASE EVENT DATE: 20130402
